FAERS Safety Report 4853646-0 (Version None)
Quarter: 2005Q4

REPORT INFORMATION
  Report Type: 
  Country: None (occurrence: None)
  Receive Date: 20051214
  Receipt Date: 20051208
  Transmission Date: 20060501
  Serious: Yes (Death)
  Sender: FDA-Public Use
  Company Number: JP-GILEAD-2005-0009008

PATIENT
  Sex: Male

DRUGS (17)
  1. HEPSERA [Suspect]
     Indication: HEPATITIS B
     Route: 048
     Dates: start: 20030813
  2. HEPSERA [Suspect]
     Indication: HEPATIC CIRRHOSIS
  3. ZEFFIX [Suspect]
     Indication: HEPATIC CIRRHOSIS
     Route: 048
     Dates: start: 20010110
  4. AMINOLEBAN EN [Concomitant]
  5. CLARITHROMYCIN [Concomitant]
  6. ASTOMIN [Concomitant]
  7. LASIX [Concomitant]
  8. KAYWAN [Concomitant]
  9. MONILAC [Concomitant]
  10. TAKEPRON [Concomitant]
  11. ALLELOCK [Concomitant]
  12. AMINOLEBAN [Concomitant]
  13. NEO-MINOPHAGEN C [Concomitant]
  14. KANAMYCIN [Concomitant]
  15. SOLDACTONE [Concomitant]
  16. ALDACTONE [Concomitant]
  17. URSO [Concomitant]

REACTIONS (5)
  - ALANINE AMINOTRANSFERASE INCREASED [None]
  - ANTI-HBE ANTIBODY POSITIVE [None]
  - ASPARTATE AMINOTRANSFERASE INCREASED [None]
  - BLOOD ALBUMIN DECREASED [None]
  - PROTHROMBIN TIME SHORTENED [None]
